FAERS Safety Report 5251146-X (Version None)
Quarter: 2007Q1

REPORT INFORMATION
  Report Type: 
  Country: None (occurrence: None)
  Receive Date: 20070228
  Receipt Date: 20060901
  Transmission Date: 20070707
  Serious: No
  Sender: FDA-Public Use
  Company Number: US-GLAXOSMITHKLINE-A0618930A

PATIENT
  Age: 58 Year
  Sex: Female

DRUGS (8)
  1. LAMICTAL [Suspect]
     Indication: EPILEPSY
     Dosage: 50MG TWICE PER DAY
     Route: 048
     Dates: start: 20060601
  2. ACIPHEX [Concomitant]
  3. EFFEXOR XR [Concomitant]
  4. AMOXICILLIN [Concomitant]
  5. PROGESTERONE [Concomitant]
  6. CALCIUM [Concomitant]
  7. MAGNESIUM [Concomitant]
  8. ZINC [Concomitant]

REACTIONS (2)
  - DIZZINESS [None]
  - INSOMNIA [None]
